FAERS Safety Report 4807709-6 (Version None)
Quarter: 2005Q4

REPORT INFORMATION
  Report Type: 
  Country: None (occurrence: None)
  Receive Date: 20051019
  Receipt Date: 20051005
  Transmission Date: 20060501
  Serious: Yes (Other)
  Sender: FDA-Public Use
  Company Number: FR-2005-020687

PATIENT
  Age: 24 Year
  Sex: Female

DRUGS (1)
  1. MIRENA [Suspect]
     Indication: CONTRACEPTION
     Dosage: 20 UG/DAY, CONT; INTRA-UTERINE
     Route: 015
     Dates: start: 20041102

REACTIONS (2)
  - PITUITARY TUMOUR [None]
  - WEIGHT INCREASED [None]
